FAERS Safety Report 18278338 (Version 1)
Quarter: 2020Q3

REPORT INFORMATION
  Report Type: Spontaneous
  Country: US (occurrence: US)
  Receive Date: 20200917
  Receipt Date: 20200917
  Transmission Date: 20201103
  Serious: Yes (Other)
  Sender: FDA-Public Use
  Company Number: None

PATIENT
  Sex: Female

DRUGS (1)
  1. EPINEPHRINE 0.3MG/0.3ML [Suspect]
     Active Substance: EPINEPHRINE

REACTIONS (2)
  - Incorrect dose administered by device [None]
  - Device malfunction [None]
